FAERS Safety Report 25350993 (Version 7)
Quarter: 2025Q3

REPORT INFORMATION
  Report Type: Report from Study
  Country: US (occurrence: US)
  Receive Date: 20250523
  Receipt Date: 20250930
  Transmission Date: 20251020
  Serious: Yes (Other)
  Sender: TAKEDA
  Company Number: US-TAKEDA-2025TUS021052

PATIENT
  Age: 63 Year
  Sex: Male

DRUGS (6)
  1. IXAZOMIB [Suspect]
     Active Substance: IXAZOMIB
     Indication: Plasma cell myeloma in remission
  2. IXAZOMIB [Suspect]
     Active Substance: IXAZOMIB
     Indication: Plasma cell myeloma
  3. IXAZOMIB [Suspect]
     Active Substance: IXAZOMIB
  4. POMALYST [Suspect]
     Active Substance: POMALIDOMIDE
     Indication: Plasma cell myeloma in remission
  5. POMALYST [Suspect]
     Active Substance: POMALIDOMIDE
     Indication: Plasma cell myeloma
  6. TYLENOL [Concomitant]
     Active Substance: ACETAMINOPHEN

REACTIONS (23)
  - Neuropathy peripheral [Not Recovered/Not Resolved]
  - Cardiac failure congestive [Unknown]
  - Pulmonary oedema [Unknown]
  - Sarcoidosis [Unknown]
  - Oedema [Unknown]
  - Localised oedema [Not Recovered/Not Resolved]
  - Skin discolouration [Not Recovered/Not Resolved]
  - Off label use [Not Recovered/Not Resolved]
  - Inappropriate schedule of product administration [Unknown]
  - Swelling [Recovering/Resolving]
  - Myalgia [Not Recovered/Not Resolved]
  - Limb mass [Unknown]
  - Taste disorder [Not Recovered/Not Resolved]
  - Secretion discharge [Not Recovered/Not Resolved]
  - Muscular weakness [Unknown]
  - Peripheral swelling [Recovering/Resolving]
  - Dyspnoea [Unknown]
  - Muscle spasms [Not Recovered/Not Resolved]
  - Dizziness [Not Recovered/Not Resolved]
  - Asthenia [Not Recovered/Not Resolved]
  - Fatigue [Not Recovered/Not Resolved]
  - Arthralgia [Not Recovered/Not Resolved]
  - Oedema peripheral [Not Recovered/Not Resolved]

NARRATIVE: CASE EVENT DATE: 20250215
